FAERS Safety Report 8585934-9 (Version None)
Quarter: 2012Q3

REPORT INFORMATION
  Report Type: 
  Country: None (occurrence: None)
  Receive Date: 20120810
  Receipt Date: 20120806
  Transmission Date: 20120928
  Serious: Yes (Death, Other)
  Sender: FDA-Public Use
  Company Number: US-PFIZER INC-2012163808

PATIENT
  Age: 74 Year
  Sex: Female
  Weight: 53.515 kg

DRUGS (2)
  1. MORPHINE [Concomitant]
     Indication: PAIN
     Dosage: UNK
  2. VFEND [Suspect]
     Indication: ASPERGILLOSIS
     Dosage: 200 MG (FOUR TABLETS OF 50MG), 2X/DAY
     Route: 048
     Dates: start: 20111001

REACTIONS (3)
  - ORGAN FAILURE [None]
  - FULL BLOOD COUNT DECREASED [None]
  - RENAL FAILURE [None]
